FAERS Safety Report 16014904 (Version 1)
Quarter: 2019Q1

REPORT INFORMATION
  Report Type: Report from Study
  Country: US (occurrence: US)
  Receive Date: 20190227
  Receipt Date: 20190227
  Transmission Date: 20190418
  Serious: Yes (Death, Other)
  Sender: FDA-Public Use
  Company Number: US-BEH-2019099713

PATIENT
  Age: 57 Year

DRUGS (4)
  1. HUMAN FACTOR VIII (GENERIC) [Suspect]
     Active Substance: ANTIHEMOPHILIC FACTOR HUMAN
     Indication: PROPHYLAXIS
     Dosage: 3000 IU, BID (46.15 IU/KG)
     Route: 065
  2. FACTOR VIII RECOMBINANT (INN) [Suspect]
     Active Substance: ANTIHEMOPHILIC FACTOR, HUMAN RECOMBINANT
     Indication: HAEMOPHILIA A WITHOUT INHIBITORS
     Route: 065
  3. HUMAN FACTOR VIII (GENERIC) [Suspect]
     Active Substance: ANTIHEMOPHILIC FACTOR HUMAN
     Indication: HAEMOPHILIA A WITHOUT INHIBITORS
     Route: 065
  4. FACTOR VIII RECOMBINANT (INN) [Suspect]
     Active Substance: ANTIHEMOPHILIC FACTOR, HUMAN RECOMBINANT
     Indication: PROPHYLAXIS
     Dosage: 3000 IU, BID (46.15 IU/KG)
     Route: 065

REACTIONS (2)
  - Drug effect incomplete [Unknown]
  - Myocardial infarction [Fatal]
